FAERS Safety Report 7381656-0 (Version None)
Quarter: 2011Q1

REPORT INFORMATION
  Report Type: 
  Country: None (occurrence: None)
  Receive Date: 20110329
  Receipt Date: 20101012
  Transmission Date: 20110831
  Serious: Yes (Life-Threatening, Disabling, Other)
  Sender: FDA-Public Use
  Company Number: US-BAYER-200928685NA

PATIENT
  Sex: Female
  Weight: 61.364 kg

DRUGS (3)
  1. YASMIN [Suspect]
     Indication: ACNE
     Route: 048
     Dates: start: 20030101, end: 20040801
  2. ULTRAM PRN [Concomitant]
  3. YASMIN [Suspect]
     Indication: PREMENSTRUAL SYNDROME

REACTIONS (6)
  - BILIARY COLIC [None]
  - CHOLECYSTITIS [None]
  - PAIN IN EXTREMITY [None]
  - DEEP VEIN THROMBOSIS [None]
  - BACK PAIN [None]
  - OEDEMA PERIPHERAL [None]
